FAERS Safety Report 10518523 (Version 1)
Quarter: 2014Q4

REPORT INFORMATION
  Report Type: Spontaneous
  Country: US (occurrence: None)
  Receive Date: 20141014
  Receipt Date: 20141014
  Transmission Date: 20150528
  Serious: Yes (Death, Hospitalization)
  Sender: FDA-Public Use
  Company Number: None

PATIENT
  Age: 94 Year
  Sex: Female
  Weight: 62.14 kg

DRUGS (1)
  1. APIXABAN 2.5 MG [Suspect]
     Active Substance: APIXABAN
     Indication: ANTICOAGULANT THERAPY
     Route: 048
     Dates: start: 20140812, end: 20140818

REACTIONS (18)
  - Pneumonia [None]
  - Pulmonary oedema [None]
  - Urinary tract infection [None]
  - Infection [None]
  - Contusion [None]
  - Haematochezia [None]
  - Dehydration [None]
  - Weight increased [None]
  - Hepatic cirrhosis [None]
  - Heart rate increased [None]
  - Abdominal pain [None]
  - Renal failure [None]
  - Gastric disorder [None]
  - Aphasia [None]
  - Lethargy [None]
  - Pain [None]
  - Hypersomnia [None]
  - Blood pressure decreased [None]

NARRATIVE: CASE EVENT DATE: 20140823
